FAERS Safety Report 17796146 (Version 2)
Quarter: 2020Q2

REPORT INFORMATION
  Report Type: Report from Study
  Country: CL (occurrence: CL)
  Receive Date: 20200517
  Receipt Date: 20200609
  Transmission Date: 20200714
  Serious: Yes (Hospitalization)
  Sender: FDA-Public Use
  Company Number: NVSC2020CL125544

PATIENT
  Age: 70 Year
  Sex: Female
  Weight: 69.4 kg

DRUGS (28)
  1. LEUCOVORIN. [Suspect]
     Active Substance: LEUCOVORIN
     Indication: COLORECTAL CANCER METASTATIC
     Dosage: UNK
     Route: 042
     Dates: start: 20200414
  2. ENALAPRIL [Concomitant]
     Active Substance: ENALAPRIL
     Dosage: UNK
     Route: 065
     Dates: start: 20200507, end: 20200511
  3. PROPANOLOL [Concomitant]
     Active Substance: PROPRANOLOL HYDROCHLORIDE
     Indication: HYPERTENSION
     Dosage: UNK
     Route: 065
     Dates: start: 20100301, end: 20200506
  4. PROPANOLOL [Concomitant]
     Active Substance: PROPRANOLOL HYDROCHLORIDE
     Dosage: UNK
     Route: 065
     Dates: start: 20200507, end: 20200511
  5. MORPHINE [Concomitant]
     Active Substance: MORPHINE
     Indication: LARGE INTESTINE PERFORATION
     Dosage: UNK
     Route: 065
     Dates: start: 20200511, end: 20200511
  6. CLONAZEPAM. [Concomitant]
     Active Substance: CLONAZEPAM
     Indication: LARGE INTESTINE PERFORATION
     Dosage: UNK
     Route: 065
     Dates: start: 20200511, end: 20200513
  7. OMEPRAZOLE. [Concomitant]
     Active Substance: OMEPRAZOLE
     Indication: PROPHYLAXIS
     Dosage: UNK
     Route: 065
     Dates: start: 20200509, end: 20200511
  8. OMEPRAZOLE. [Concomitant]
     Active Substance: OMEPRAZOLE
     Indication: LARGE INTESTINE PERFORATION
     Dosage: UNK
     Route: 065
     Dates: start: 20191201, end: 20200506
  9. MORPHINE [Concomitant]
     Active Substance: MORPHINE
     Dosage: UNK
     Route: 065
     Dates: start: 20200512, end: 20200512
  10. PARECOXIB [Concomitant]
     Active Substance: PARECOXIB
     Indication: LARGE INTESTINE PERFORATION
     Dosage: UNK
     Route: 065
     Dates: start: 20200512, end: 20200518
  11. SERTRALINE [Concomitant]
     Active Substance: SERTRALINE HYDROCHLORIDE
     Indication: DEPRESSION
     Dosage: UNK
     Route: 065
     Dates: start: 20191201, end: 20200511
  12. CIPROFLOXACINE [Concomitant]
     Active Substance: CIPROFLOXACIN
     Indication: URINARY TRACT INFECTION
     Dosage: UNK
     Route: 065
     Dates: start: 20200428, end: 20200504
  13. ACETAMINOPHEN. [Concomitant]
     Active Substance: ACETAMINOPHEN
     Indication: LARGE INTESTINE PERFORATION
     Dosage: UNK
     Route: 065
     Dates: start: 20200511, end: 20200514
  14. ENOXAPARIN [Concomitant]
     Active Substance: ENOXAPARIN
     Indication: LARGE INTESTINE PERFORATION
     Dosage: UNK
     Route: 065
     Dates: start: 20200512, end: 20200518
  15. 5-FLUOROURACIL [Suspect]
     Active Substance: FLUOROURACIL
     Indication: COLORECTAL CANCER METASTATIC
     Dosage: UNK
     Route: 042
     Dates: start: 20200414
  16. ENALAPRIL [Concomitant]
     Active Substance: ENALAPRIL
     Indication: HYPERTENSION
     Dosage: UNK
     Route: 065
     Dates: start: 20100301, end: 20200506
  17. ALPRAZOLAM. [Concomitant]
     Active Substance: ALPRAZOLAM
     Indication: DEPRESSION
     Dosage: UNK
     Route: 065
     Dates: start: 20191201, end: 20200511
  18. BEVACIZUMAB. [Suspect]
     Active Substance: BEVACIZUMAB
     Indication: COLORECTAL CANCER METASTATIC
     Dosage: UNK
     Route: 042
     Dates: start: 20200414
  19. CEFOTAXIME [Concomitant]
     Active Substance: CEFOTAXIME SODIUM
     Indication: LARGE INTESTINE PERFORATION
     Dosage: UNK
     Route: 065
     Dates: start: 20200511, end: 20200515
  20. CAPTOPRIL. [Concomitant]
     Active Substance: CAPTOPRIL
     Indication: LARGE INTESTINE PERFORATION
     Dosage: UNK
     Route: 065
     Dates: start: 20200511, end: 20200518
  21. GEVOKIZUMAB [Suspect]
     Active Substance: GEVOKIZUMAB
     Indication: COLORECTAL CANCER METASTATIC
     Dosage: UNK
     Route: 042
     Dates: start: 20200331
  22. GLUCOSE [Concomitant]
     Active Substance: DEXTROSE
     Indication: LARGE INTESTINE PERFORATION
     Dosage: UNK
     Route: 065
     Dates: start: 20200511, end: 20200513
  23. PHYSIOLOGICAL SALINE SOLUTION [Concomitant]
     Active Substance: SODIUM CHLORIDE
     Indication: LARGE INTESTINE PERFORATION
     Dosage: UNK
     Route: 065
     Dates: start: 20200511, end: 20200511
  24. OMEPRAZOLE. [Concomitant]
     Active Substance: OMEPRAZOLE
     Indication: PROPHYLAXIS
     Dosage: UNK
     Route: 065
     Dates: start: 20200511, end: 20200518
  25. OXALIPLATIN. [Suspect]
     Active Substance: OXALIPLATIN
     Indication: COLORECTAL CANCER METASTATIC
     Dosage: UNK
     Route: 042
     Dates: start: 20200414
  26. PARGEVERINE HYDROCHLORIDE [Concomitant]
     Active Substance: PARGEVERINE HYDROCHLORIDE
     Indication: ABDOMINAL PAIN UPPER
     Dosage: UNK
     Route: 065
     Dates: start: 20191201
  27. METRONIDAZOLE. [Concomitant]
     Active Substance: METRONIDAZOLE
     Indication: LARGE INTESTINE PERFORATION
     Dosage: UNK
     Route: 065
     Dates: start: 20200511, end: 20200515
  28. ONDANSETRON [Concomitant]
     Active Substance: ONDANSETRON
     Indication: LARGE INTESTINE PERFORATION
     Dosage: UNK
     Route: 065
     Dates: start: 20200511, end: 20200518

REACTIONS (1)
  - Lower gastrointestinal haemorrhage [Recovered/Resolved]

NARRATIVE: CASE EVENT DATE: 20200507
